FAERS Safety Report 8536256-3 (Version None)
Quarter: 2012Q3

REPORT INFORMATION
  Report Type: 
  Country: None (occurrence: None)
  Receive Date: 20120725
  Receipt Date: 20120719
  Transmission Date: 20120928
  Serious: Yes (Hospitalization)
  Sender: FDA-Public Use
  Company Number: BR-PFIZER INC-2012174945

PATIENT
  Age: 46 Year
  Sex: Male

DRUGS (2)
  1. SUTENT [Suspect]
     Indication: RENAL CELL CARCINOMA
     Dosage: 50 MG (CYCLE 4 / 2)
     Route: 048
     Dates: start: 20120602
  2. MORPHINE [Concomitant]
     Dosage: 30 MG, EVERY 6 HOURS

REACTIONS (1)
  - RESPIRATORY FAILURE [None]
